FAERS Safety Report 12321694 (Version 2)
Quarter: 2016Q2

REPORT INFORMATION
  Report Type: Spontaneous
  Country: US (occurrence: US)
  Receive Date: 20160502
  Receipt Date: 20160503
  Transmission Date: 20160815
  Serious: Yes (Other)
  Sender: FDA-Public Use
  Company Number: US-CIPLA LTD.-2016US04256

PATIENT

DRUGS (7)
  1. INDOMETHACIN. [Suspect]
     Active Substance: INDOMETHACIN
     Indication: HEADACHE
     Dosage: UNK
     Route: 065
     Dates: start: 200807
  2. MELATONIN [Suspect]
     Active Substance: MELATONIN
     Dosage: 30 MG, QHS HIGH DOSE
     Route: 065
  3. TOPIRAMATE. [Suspect]
     Active Substance: TOPIRAMATE
     Indication: MIGRAINE
     Dosage: UNK
     Route: 065
     Dates: start: 2007
  4. TOPIRAMATE. [Suspect]
     Active Substance: TOPIRAMATE
     Indication: HEADACHE
  5. BACLOFEN. [Suspect]
     Active Substance: BACLOFEN
     Indication: CERVICOGENIC HEADACHE
     Dosage: UNK
     Route: 065
     Dates: start: 2010
  6. MELATONIN [Suspect]
     Active Substance: MELATONIN
     Dosage: 10 MG, QHS
  7. INDOMETHACIN. [Suspect]
     Active Substance: INDOMETHACIN
     Dosage: TITRATED UP TO100 MG, TID
     Route: 065
     Dates: end: 2010

REACTIONS (4)
  - Cognitive disorder [Unknown]
  - Gastrointestinal ulcer haemorrhage [Unknown]
  - Fall [Unknown]
  - Nightmare [Unknown]

NARRATIVE: CASE EVENT DATE: 200708
